FAERS Safety Report 7405089-3 (Version None)
Quarter: 2011Q2

REPORT INFORMATION
  Report Type: 
  Country: None (occurrence: None)
  Receive Date: 20110404
  Receipt Date: 20110330
  Transmission Date: 20111010
  Serious: Yes (Other)
  Sender: FDA-Public Use
  Company Number: SP03576

PATIENT
  Age: 51 Year
  Sex: Female

DRUGS (1)
  1. OSMOPREP [Suspect]
     Indication: COLONOSCOPY
     Dosage: (SPLIT DOSE REGIMEN), ORAL
     Route: 048
     Dates: start: 20110210, end: 20110211

REACTIONS (1)
  - NECROTISING GASTRITIS [None]
